FAERS Safety Report 26046288 (Version 2)
Quarter: 2025Q4

REPORT INFORMATION
  Report Type: Spontaneous
  Country: US (occurrence: US)
  Receive Date: 20251114
  Receipt Date: 20251221
  Transmission Date: 20260118
  Serious: Yes (Other)
  Sender: BOEHRINGER INGELHEIM
  Company Number: US-Komodo Health-a23aa00000BxTkPAAV

PATIENT
  Age: 74 Year
  Sex: Female

DRUGS (2)
  1. SPIRIVA RESPIMAT [Suspect]
     Active Substance: TIOTROPIUM BROMIDE
     Indication: Product used for unknown indication
     Dosage: 1.25 MCG
  2. UMECLIDINIUM BROMIDE\VILANTEROL TRIFENATATE [Concomitant]
     Active Substance: UMECLIDINIUM BROMIDE\VILANTEROL TRIFENATATE
     Indication: Product used for unknown indication

REACTIONS (3)
  - Lung neoplasm malignant [Unknown]
  - Dyspnoea [Unknown]
  - Device issue [Unknown]

NARRATIVE: CASE EVENT DATE: 20250101
